FAERS Safety Report 13687875 (Version 1)
Quarter: 2017Q2

REPORT INFORMATION
  Report Type: Spontaneous
  Country: CA (occurrence: CA)
  Receive Date: 20170626
  Receipt Date: 20170626
  Transmission Date: 20170830
  Serious: Yes (Other)
  Sender: FDA-Public Use
  Company Number: CA-BEH-2017081442

PATIENT
  Age: 77 Year
  Sex: Female

DRUGS (4)
  1. METOPROLOL. [Concomitant]
     Active Substance: METOPROLOL
     Route: 065
  2. ALBUREX [Suspect]
     Active Substance: ALBUMIN HUMAN
     Indication: ASCITES
  3. ALBUREX [Suspect]
     Active Substance: ALBUMIN HUMAN
     Indication: CHOLELITHIASIS
  4. ALBUREX [Suspect]
     Active Substance: ALBUMIN HUMAN
     Indication: CHOLELITHIASIS
     Dosage: UNK
     Route: 065
     Dates: start: 20160411, end: 20160411

REACTIONS (6)
  - Electrocardiogram QRS complex prolonged [Unknown]
  - Septic shock [Unknown]
  - Hypotension [Unknown]
  - Dyspnoea [Unknown]
  - Atrial fibrillation [Unknown]
  - Tachycardia [Unknown]

NARRATIVE: CASE EVENT DATE: 20160411
